FAERS Safety Report 8142325-2 (Version None)
Quarter: 2012Q1

REPORT INFORMATION
  Report Type: 
  Country: None (occurrence: None)
  Receive Date: 20120216
  Receipt Date: 20120207
  Transmission Date: 20120608
  Serious: Yes (Hospitalization)
  Sender: FDA-Public Use
  Company Number: NO-NOVOPROD-344487

PATIENT
  Age: 22 Year
  Sex: Male

DRUGS (4)
  1. ANADROL [Suspect]
     Route: 048
  2. TRENBOLONE [Suspect]
  3. NORDITROPIN [Suspect]
     Indication: OFF LABEL USE
  4. TESTOSTERONE [Suspect]

REACTIONS (3)
  - SCROTAL OEDEMA [None]
  - NEPHROTIC SYNDROME [None]
  - OEDEMA PERIPHERAL [None]
